FAERS Safety Report 9102803 (Version 10)
Quarter: 2014Q2

REPORT INFORMATION
  Report Type: Spontaneous
  Country: US (occurrence: US)
  Receive Date: 20130219
  Receipt Date: 20140403
  Transmission Date: 20141212
  Serious: Yes (Hospitalization)
  Sender: FDA-Public Use
  Company Number: US-JNJFOC-20120109904

PATIENT
  Age: 67 Year
  Sex: Female
  Weight: 86.18 kg

DRUGS (10)
  1. TYLENOL [Suspect]
     Route: 065
  2. TYLENOL [Suspect]
     Indication: PAIN
     Dosage: 6-8 PILLS PER DAY, EVERY 4-6 HOURS AS NEEDED
     Route: 065
  3. BENZODIAZEPINE NOS [Suspect]
     Indication: PRODUCT USED FOR UNKNOWN INDICATION
     Route: 065
  4. RELAFEN [Suspect]
     Indication: PRODUCT USED FOR UNKNOWN INDICATION
     Route: 065
  5. GABAPENTIN [Concomitant]
     Indication: HORMONE THERAPY
     Dosage: HALF TABLET
     Route: 048
  6. TRIAMTERENE [Concomitant]
     Indication: BLOOD PRESSURE
     Route: 048
  7. PREMARIN [Concomitant]
     Indication: HORMONE REPLACEMENT THERAPY
     Route: 048
     Dates: start: 2003
  8. LORTAB [Concomitant]
     Indication: PAIN
     Dosage: 7.5 (UNSPECIFIED)
     Route: 048
  9. XANAX [Concomitant]
     Indication: ANXIETY
     Dosage: 1 TABLET BID PRN
     Route: 048
     Dates: start: 2002
  10. LISINOPRIL [Concomitant]
     Indication: BLOOD PRESSURE
     Route: 065

REACTIONS (2)
  - Hepatic encephalopathy [Recovering/Resolving]
  - Acute hepatic failure [Recovered/Resolved]
